FAERS Safety Report 7630005-9 (Version None)
Quarter: 2011Q3

REPORT INFORMATION
  Report Type: 
  Country: None (occurrence: None)
  Receive Date: 20110722
  Receipt Date: 20110711
  Transmission Date: 20111222
  Serious: Yes (Hospitalization, Disabling, Other)
  Sender: FDA-Public Use
  Company Number: JP-PFIZER INC-2011138434

PATIENT
  Age: 63 Year
  Sex: Female
  Weight: 79 kg

DRUGS (9)
  1. ADALAT [Concomitant]
     Indication: HYPERTENSION
     Dosage: UNK
  2. MIROBECT [Concomitant]
     Indication: HYPERTENSION
     Dosage: UNK
     Route: 048
  3. KINEDAK [Concomitant]
     Indication: DIABETIC NEPHROPATHY
     Dosage: UNK
     Route: 048
  4. RABEPRAZOLE SODIUM [Concomitant]
     Indication: GASTROOESOPHAGEAL REFLUX DISEASE
     Dosage: UNK
     Route: 048
  5. NOVORAPID [Concomitant]
     Dosage: UNK
  6. NOVOLIN N [Concomitant]
     Dosage: UNK
  7. OLMESARTAN MEDOXOMIL [Concomitant]
     Indication: HYPERTENSION
     Dosage: UNK
     Route: 048
  8. ATORVASTATIN CALCIUM [Suspect]
     Indication: HYPERCHOLESTEROLAEMIA
     Dosage: 10 MG, 1X/DAY
     Route: 048
     Dates: start: 20101207
  9. LASIX [Concomitant]
     Indication: HYPERTENSION
     Dosage: UNK
     Route: 048

REACTIONS (3)
  - RENAL IMPAIRMENT [None]
  - CARDIAC FAILURE [None]
  - PNEUMONIA [None]
